FAERS Safety Report 21283434 (Version 8)
Quarter: 2022Q4

REPORT INFORMATION
  Report Type: Spontaneous
  Country: US (occurrence: US)
  Receive Date: 20220901
  Receipt Date: 20221227
  Transmission Date: 20230113
  Serious: Yes (Hospitalization, Other)
  Sender: FDA-Public Use
  Company Number: US-UNITED THERAPEUTICS-UNT-2022-016571

PATIENT
  Sex: Female
  Weight: 83.447 kg

DRUGS (35)
  1. REMODULIN [Suspect]
     Active Substance: TREPROSTINIL
     Indication: Pulmonary arterial hypertension
     Dosage: UNK, CONTINUING
     Route: 041
     Dates: start: 20211123
  2. REMODULIN [Suspect]
     Active Substance: TREPROSTINIL
     Dosage: 0.020 ?G/KG, CONTINUING
     Route: 041
  3. REMODULIN [Suspect]
     Active Substance: TREPROSTINIL
     Dosage: UNK, CONTINUING
     Route: 041
  4. REMODULIN [Suspect]
     Active Substance: TREPROSTINIL
     Dosage: 0.040 ?G/KG, CONTINUING
     Route: 041
     Dates: start: 2022
  5. ADCIRCA [Concomitant]
     Active Substance: TADALAFIL
     Indication: Hypertension
     Dosage: 20 MG, BID
     Route: 048
  6. ADCIRCA [Concomitant]
     Active Substance: TADALAFIL
     Dosage: UNK, QD
     Route: 048
  7. ELIQUIS [Concomitant]
     Active Substance: APIXABAN
     Indication: Product used for unknown indication
     Dosage: 2.5 MG, Q12H
     Route: 048
     Dates: start: 20220108
  8. SILDENAFIL [Concomitant]
     Active Substance: SILDENAFIL
     Indication: Product used for unknown indication
     Dosage: 20 MG, TID
     Route: 065
  9. DILTIAZEM [Concomitant]
     Active Substance: DILTIAZEM
     Indication: Product used for unknown indication
     Dosage: UNK
     Route: 065
  10. ALBUTEROL [Concomitant]
     Active Substance: ALBUTEROL
     Indication: Product used for unknown indication
     Dosage: UNK, Q4H (2 PUFFS) (PRN)
  11. ASPIRIN [Concomitant]
     Active Substance: ASPIRIN
     Indication: Product used for unknown indication
     Dosage: 81 MG, QD
     Route: 048
     Dates: start: 20210405
  12. LIPITOR [Concomitant]
     Active Substance: ATORVASTATIN CALCIUM
     Indication: Product used for unknown indication
     Dosage: 80 MG, QD (AT BED TIME)
     Route: 048
     Dates: start: 20210927
  13. NEPHROCAPS [Concomitant]
     Active Substance: ASCORBIC ACID\BIOTIN\CYANOCOBALAMIN\FOLIC ACID\NIACIN\PANTOTHENIC ACID\PYRIDOXINE\RIBOFLAVIN\THIAMIN
     Indication: Product used for unknown indication
     Dosage: 1 MG, QD
     Route: 048
     Dates: start: 20211130
  14. COMBIGAN [Concomitant]
     Active Substance: BRIMONIDINE TARTRATE\TIMOLOL MALEATE
     Indication: Product used for unknown indication
     Dosage: UNK, Q12H (1 DROP IN TO AFFECTED EYES)
     Route: 047
     Dates: start: 20210601
  15. PHOSLO [Concomitant]
     Active Substance: CALCIUM ACETATE
     Indication: Product used for unknown indication
     Dosage: 1334 MG, TID
     Route: 048
  16. CELEXA [Concomitant]
     Active Substance: CITALOPRAM HYDROBROMIDE
     Indication: Product used for unknown indication
     Dosage: 10 MG, QD
     Route: 048
     Dates: start: 20211229
  17. RESTASIS [Concomitant]
     Active Substance: CYCLOSPORINE
     Indication: Product used for unknown indication
     Dosage: UNK, BID (1 DROP INTO AFFECTED EYES)
     Route: 047
  18. DICLOFENAC SODIUM [Concomitant]
     Active Substance: DICLOFENAC SODIUM
     Indication: Product used for unknown indication
     Dosage: 4 GRAM, Q4H
     Route: 061
  19. NEXIUM [Concomitant]
     Active Substance: ESOMEPRAZOLE MAGNESIUM
     Indication: Product used for unknown indication
     Dosage: 10 MG, QD (BEFORE BREAKFAST)
     Route: 048
  20. ULORIC [Concomitant]
     Active Substance: FEBUXOSTAT
     Indication: Product used for unknown indication
     Dosage: 40 MG, QD
     Route: 048
     Dates: start: 20210621
  21. FLORINEF ACETATE [Concomitant]
     Active Substance: FLUDROCORTISONE ACETATE
     Indication: Product used for unknown indication
     Dosage: 0.1 MG, QD
     Route: 048
     Dates: start: 20220117
  22. NEURONTIN [Concomitant]
     Active Substance: GABAPENTIN
     Indication: Product used for unknown indication
     Dosage: 300 MG, BID
     Route: 048
     Dates: start: 20210807
  23. HYDROCORTISONE [Concomitant]
     Active Substance: HYDROCORTISONE
     Indication: Product used for unknown indication
     Dosage: UNK, BID (1 APPLICATION)
     Route: 061
  24. ATARAX [Concomitant]
     Active Substance: HYDROXYZINE HYDROCHLORIDE
     Indication: Product used for unknown indication
     Dosage: 25 MG, PRN
     Route: 048
     Dates: start: 20211011
  25. LANTUS [Concomitant]
     Active Substance: INSULIN GLARGINE
     Indication: Product used for unknown indication
     Dosage: UNK, QD (100 UNIT, 3 ML PEN)
     Route: 058
     Dates: start: 20210728
  26. APIDRA [Concomitant]
     Active Substance: INSULIN GLULISINE
     Indication: Product used for unknown indication
     Dosage: UNK, TID (20 UNIT)
     Route: 058
  27. XALATAN [Concomitant]
     Active Substance: LATANOPROST
     Indication: Product used for unknown indication
     Dosage: UNK, QD (1 DROP INTO BOTH EYES EVERY NIGHT)
     Route: 047
     Dates: start: 20220210
  28. ANTIVERT [Concomitant]
     Active Substance: MECLIZINE HYDROCHLORIDE
     Indication: Product used for unknown indication
     Dosage: 12.5 MG, BID
     Route: 048
     Dates: start: 20220127
  29. MIRCERA [Concomitant]
     Active Substance: METHOXY POLYETHYLENE GLYCOL-EPOETIN BETA
     Indication: Product used for unknown indication
     Dosage: 100 ?G (INTO VENOUS CATHETER)
     Route: 042
     Dates: start: 20220217
  30. PROAMATINE [Concomitant]
     Active Substance: MIDODRINE HYDROCHLORIDE
     Indication: Product used for unknown indication
     Dosage: 20 MG, TID
     Route: 048
     Dates: start: 20220114
  31. ZOFRAN [Concomitant]
     Active Substance: ONDANSETRON HYDROCHLORIDE
     Indication: Product used for unknown indication
     Dosage: 8 MG, QD (UNDER THE TONGUE EVERY NIGHT)
     Route: 060
     Dates: start: 20210810
  32. ROXICODONE [Concomitant]
     Active Substance: OXYCODONE HYDROCHLORIDE
     Indication: Product used for unknown indication
     Dosage: 10 MG, TID
     Route: 048
     Dates: start: 20211214
  33. OXYGEN [Concomitant]
     Active Substance: OXYGEN
     Indication: Product used for unknown indication
     Dosage: UNK, CONTINUING (VIA NASAL CANULA)
  34. PROTONIX [Concomitant]
     Active Substance: PANTOPRAZOLE SODIUM
     Indication: Product used for unknown indication
     Dosage: 40 MG, QD (IN THE MORNING)
     Route: 048
     Dates: start: 20210830
  35. TUBERSOL [Concomitant]
     Active Substance: TUBERCULIN PURIFIED PROTEIN DERIVATIVE
     Indication: Product used for unknown indication
     Dosage: 0.1 ML
     Route: 023

REACTIONS (25)
  - Transient ischaemic attack [Not Recovered/Not Resolved]
  - Dyspnoea [Not Recovered/Not Resolved]
  - Hemiparesis [Recovered/Resolved]
  - Atrial flutter [Not Recovered/Not Resolved]
  - Atrioventricular block [Not Recovered/Not Resolved]
  - Hypotension [Not Recovered/Not Resolved]
  - Dizziness [Recovered/Resolved]
  - Muscular weakness [Recovered/Resolved]
  - Anaemia [Not Recovered/Not Resolved]
  - Hypokalaemia [Not Recovered/Not Resolved]
  - Pulmonary arterial hypertension [Not Recovered/Not Resolved]
  - Syncope [Not Recovered/Not Resolved]
  - Melaena [Not Recovered/Not Resolved]
  - Haematochezia [Not Recovered/Not Resolved]
  - Gastrointestinal haemorrhage [Not Recovered/Not Resolved]
  - Hyperhidrosis [Not Recovered/Not Resolved]
  - Limb discomfort [Not Recovered/Not Resolved]
  - Abdominal discomfort [Not Recovered/Not Resolved]
  - Fatigue [Not Recovered/Not Resolved]
  - Decreased appetite [Not Recovered/Not Resolved]
  - Pain [Not Recovered/Not Resolved]
  - Pain in extremity [Not Recovered/Not Resolved]
  - Palpitations [Unknown]
  - Frequent bowel movements [Unknown]
  - Dialysis hypotension [Unknown]

NARRATIVE: CASE EVENT DATE: 20220101
